FAERS Safety Report 16063534 (Version 1)
Quarter: 2019Q1

REPORT INFORMATION
  Report Type: Spontaneous
  Country: GB (occurrence: GB)
  Receive Date: 20190312
  Receipt Date: 20190312
  Transmission Date: 20190418
  Serious: Yes (Other)
  Sender: FDA-Public Use
  Company Number: GB-TEVA-2019-GB-1022067

PATIENT
  Age: 73 Year
  Sex: Female
  Weight: 102.7 kg

DRUGS (9)
  1. GABAPENTIN. [Concomitant]
     Active Substance: GABAPENTIN
  2. ACTAVIS GROUP PTC CO-CODAMOL [Concomitant]
  3. LINAGLIPTIN [Concomitant]
     Active Substance: LINAGLIPTIN
  4. ATORVASTATIN CALCIUM. [Concomitant]
     Active Substance: ATORVASTATIN CALCIUM
  5. NAPROXEN. [Concomitant]
     Active Substance: NAPROXEN
  6. LEVOTHYROXINE. [Concomitant]
     Active Substance: LEVOTHYROXINE
  7. DOXAZOSIN MESYLATE. [Concomitant]
     Active Substance: DOXAZOSIN MESYLATE
  8. FELODIPINE. [Concomitant]
     Active Substance: FELODIPINE
  9. CLARITHROMYCIN. [Suspect]
     Active Substance: CLARITHROMYCIN
     Dosage: 500 MILLIGRAM DAILY;
     Route: 048
     Dates: start: 20140804, end: 20190207

REACTIONS (2)
  - Type 2 diabetes mellitus [Unknown]
  - Electrocardiogram QT prolonged [Recovering/Resolving]
